FAERS Safety Report 11524908 (Version 1)
Quarter: 2015Q3

REPORT INFORMATION
  Report Type: Report from Study
  Country: US (occurrence: US)
  Receive Date: 20150918
  Receipt Date: 20150918
  Transmission Date: 20151125
  Serious: Yes (Hospitalization, Other)
  Sender: FDA-Public Use
  Company Number: US-ROCHE-1632347

PATIENT
  Age: 46 Year
  Sex: Female
  Weight: 63.5 kg

DRUGS (9)
  1. DOCETAXEL. [Suspect]
     Active Substance: DOCETAXEL
     Indication: HER-2 POSITIVE BREAST CANCER
     Dosage: 75MG/M2 IV OVER 60 MIN ON DAY 1 Q3 WEEKS?LAST DOSE PRIOR TO SAE ON 14/JUL/2015
     Route: 042
  2. DOCETAXEL. [Suspect]
     Active Substance: DOCETAXEL
     Dosage: REDUCED DOSE
     Route: 042
  3. CARBOPLATIN. [Suspect]
     Active Substance: CARBOPLATIN
     Indication: HER-2 POSITIVE BREAST CANCER
     Dosage: AUC=6 MG/ML/MIN IV OVER 30-60 MIN ON DAY 1 Q3 WEEKS?LAST DOSE PRIOR TO SAE ON 14/JUL/2015
     Route: 042
     Dates: start: 20150421
  4. TRASTUZUMAB [Suspect]
     Active Substance: TRASTUZUMAB
     Indication: HER-2 POSITIVE BREAST CANCER
     Dosage: 8MG/KG IV OVER 90 MIN ON DAY 1?LOADING DOSE
     Route: 042
     Dates: start: 20150421
  5. TRASTUZUMAB [Suspect]
     Active Substance: TRASTUZUMAB
     Dosage: MAINTENENCE DOSE?LAST DOSE PRIOR TO SAE ON 14/JUL/2015
     Route: 042
     Dates: start: 20150511
  6. PERTUZUMAB [Suspect]
     Active Substance: PERTUZUMAB
     Dosage: MAINTAINENECE DOSE?LAST DOSE PRIOR TO SAE 14/JUL/2015
     Route: 042
     Dates: start: 20150511
  7. TRASTUZUMAB [Suspect]
     Active Substance: TRASTUZUMAB
     Dosage: REDUCED DOSE
     Route: 042
  8. CARBOPLATIN. [Suspect]
     Active Substance: CARBOPLATIN
     Dosage: REDUCED DOSE
     Route: 042
  9. PERTUZUMAB [Suspect]
     Active Substance: PERTUZUMAB
     Indication: HER-2 POSITIVE BREAST CANCER
     Dosage: LOADING DOSE?840MG IV OVER 60 MIN ON DAY 1
     Route: 042
     Dates: start: 20150421

REACTIONS (2)
  - Dehydration [Recovered/Resolved]
  - Ejection fraction decreased [Recovered/Resolved]

NARRATIVE: CASE EVENT DATE: 20150721
